FAERS Safety Report 5969009-0 (Version None)
Quarter: 2008Q4

REPORT INFORMATION
  Report Type: 
  Country: None (occurrence: None)
  Receive Date: 20081126
  Receipt Date: 20081120
  Transmission Date: 20090506
  Serious: Yes (Hospitalization)
  Sender: FDA-Public Use
  Company Number: FR-ABBOTT-05P-056-0310620-00

PATIENT
  Sex: Female

DRUGS (9)
  1. HUMIRA [Suspect]
     Indication: RHEUMATOID ARTHRITIS
     Route: 058
     Dates: start: 20040512, end: 20050808
  2. HUMIRA [Suspect]
     Dates: start: 20051101
  3. POTASSIUM CHLORIDE [Concomitant]
     Indication: HYPOKALAEMIA
     Dates: start: 20030101
  4. RISEDRONATE SODIUM [Concomitant]
     Indication: OSTEOPOROSIS
     Dates: start: 20020101
  5. CLORAZEPATE DIPOTASSIUM [Concomitant]
     Indication: ANXIETY
     Dates: start: 20040101
  6. KETOPROFEN [Concomitant]
     Indication: RHEUMATOID ARTHRITIS
     Dates: start: 20040512
  7. ENOXAPARIN SODIUM [Concomitant]
     Indication: THROMBOSIS PROPHYLAXIS
     Dates: start: 20050626
  8. ESOMEPRAZOLE MAGNESIUM [Concomitant]
     Indication: GASTRITIS
     Dates: start: 20050101
  9. HUMIRA [Concomitant]
     Dates: start: 20031001

REACTIONS (1)
  - COLITIS [None]
